FAERS Safety Report 6062768-0 (Version None)
Quarter: 2009Q1

REPORT INFORMATION
  Report Type: 
  Country: None (occurrence: None)
  Receive Date: 20090202
  Receipt Date: 20090202
  Transmission Date: 20090719
  Serious: Yes (Other)
  Sender: FDA-Public Use
  Company Number: None

PATIENT
  Age: 37 Year
  Sex: Female
  Weight: 49.8957 kg

DRUGS (2)
  1. AUGMENTIN '875' [Suspect]
     Indication: BRONCHITIS
     Dosage: TAKE 1 TABLET BY MONTH EVERY 12 HOURS PO
     Route: 048
     Dates: start: 20090129, end: 20090129
  2. AUGMENTIN '875' [Suspect]
     Indication: SINUSITIS
     Dosage: TAKE 1 TABLET BY MONTH EVERY 12 HOURS PO
     Route: 048
     Dates: start: 20090129, end: 20090129

REACTIONS (3)
  - DIARRHOEA [None]
  - HEADACHE [None]
  - VOMITING [None]
